FAERS Safety Report 6295217-8 (Version None)
Quarter: 2009Q3

REPORT INFORMATION
  Report Type: 
  Country: None (occurrence: None)
  Receive Date: 20090803
  Receipt Date: 20090727
  Transmission Date: 20100115
  Serious: Yes (Hospitalization)
  Sender: FDA-Public Use
  Company Number: PHHO2009SE09292

PATIENT
  Sex: Male

DRUGS (1)
  1. RAD 666 RAD++PTR [Suspect]
     Indication: HEART TRANSPLANT
     Dosage: 0.75 MG, BID
     Route: 048
     Dates: start: 20080123

REACTIONS (2)
  - COMPARTMENT SYNDROME [None]
  - FASCIOTOMY [None]
